FAERS Safety Report 24663492 (Version 1)
Quarter: 2024Q4

REPORT INFORMATION
  Report Type: Spontaneous
  Country: IN (occurrence: IN)
  Receive Date: 20241126
  Receipt Date: 20241126
  Transmission Date: 20250114
  Serious: Yes (Hospitalization, Other)
  Sender: UCB
  Company Number: IN-UCBSA-2024060886

PATIENT
  Sex: Male

DRUGS (6)
  1. LEVETIRACETAM [Suspect]
     Active Substance: LEVETIRACETAM
     Indication: Epilepsy
     Dosage: UNK
  2. PHENYTOIN [Suspect]
     Active Substance: PHENYTOIN
     Indication: Epilepsy
     Dosage: UNK
  3. PHENOBARBITAL SODIUM [Suspect]
     Active Substance: PHENOBARBITAL SODIUM
     Indication: Epilepsy
     Dosage: UNK
  4. PYRIDOXINE [Concomitant]
     Active Substance: PYRIDOXINE
     Indication: Gene mutation
     Dosage: UNK
  5. LEUCOVORIN [Concomitant]
     Active Substance: LEUCOVORIN\LEUCOVORIN CALCIUM
     Indication: Gene mutation
     Dosage: UNK
  6. BIOTIN [Concomitant]
     Active Substance: BIOTIN
     Indication: Gene mutation
     Dosage: UNK

REACTIONS (2)
  - Febrile convulsion [Recovered/Resolved]
  - Multiple-drug resistance [Unknown]
